FAERS Safety Report 5518850-7 (Version None)
Quarter: 2007Q4

REPORT INFORMATION
  Report Type: 
  Country: None (occurrence: None)
  Receive Date: 20071113
  Receipt Date: 20071105
  Transmission Date: 20080405
  Serious: Yes (Death)
  Sender: FDA-Public Use
  Company Number: B0494572A

PATIENT
  Sex: Female

DRUGS (7)
  1. MELPHALAN                       INFUSION (GENERIC) [Suspect]
     Indication: OVARIAN CANCER
     Dosage: INTRAVENOUS INFUS
     Route: 042
  2. PACLITAXEL [Suspect]
     Indication: OVARIAN CANCER
  3. CYCLOPHOSPHAMIDE [Suspect]
     Indication: OVARIAN CANCER
  4. NEUPOGEN [Suspect]
     Indication: OVARIAN CANCER
  5. CARBOPLATIN [Suspect]
     Indication: OVARIAN CANCER
  6. EPIRUBICIN [Suspect]
     Indication: OVARIAN CANCER
  7. TOPOTECAN HYDROCHLORIDE     (GENERIC) [Suspect]
     Indication: OVARIAN CANCER

REACTIONS (4)
  - NEUTROPHIL COUNT DECREASED [None]
  - RENAL FAILURE ACUTE [None]
  - SHOCK HAEMORRHAGIC [None]
  - UPPER GASTROINTESTINAL HAEMORRHAGE [None]
